FAERS Safety Report 4485820-X (Version None)
Quarter: 2004Q3

REPORT INFORMATION
  Report Type: 
  Country: None (occurrence: None)
  Receive Date: 20040921
  Receipt Date: 20031017
  Transmission Date: 20050211
  Serious: Yes (Life-Threatening)
  Sender: FDA-Public Use
  Company Number: 163-20785-03100451

PATIENT
  Age: 61 Year
  Sex: Female
  Weight: 83 kg

DRUGS (11)
  1. THALOMID [Suspect]
     Indication: RENAL CANCER METASTATIC
     Dosage: 100 MG, QHS, ORAL
     Route: 048
     Dates: start: 20030825
  2. INTERLEUKIN-2 (INTERLEUKIN-2) [Suspect]
     Indication: RENAL CANCER METASTATIC
     Dosage: 18 MIU, M -F X 6 WEEKS
     Dates: start: 20030825, end: 20030829
  3. ZOCOR [Concomitant]
  4. PEPCID [Concomitant]
  5. DILAUDID [Concomitant]
  6. KYTRIL [Concomitant]
  7. CALCIUM (CALCIUM) [Concomitant]
  8. VITAMIN C (ASCORBIC ACID) [Concomitant]
  9. B COMPLEX ELX [Concomitant]
  10. B12 (CYANOBALAMIN) [Concomitant]
  11. VITAMIN E [Concomitant]

REACTIONS (2)
  - ANAPHYLACTIC REACTION [None]
  - DYSPNOEA [None]
